FAERS Safety Report 6401006-3 (Version None)
Quarter: 2009Q4

REPORT INFORMATION
  Report Type: 
  Country: None (occurrence: None)
  Receive Date: 20091015
  Receipt Date: 20070316
  Transmission Date: 20100525
  Serious: Yes (Disabling)
  Sender: FDA-Public Use
  Company Number: US-ASTRAZENECA-2006UW08227

PATIENT
  Sex: Female

DRUGS (14)
  1. SEROQUEL [Suspect]
     Route: 048
     Dates: start: 20020806
  2. SEROQUEL [Suspect]
     Route: 048
     Dates: start: 20030515
  3. SEROQUEL [Suspect]
     Route: 048
     Dates: start: 20030806
  4. DEPAKOTE ER [Concomitant]
     Dates: start: 20020612
  5. GABITRIL [Concomitant]
     Dates: start: 20030515
  6. GEODON [Concomitant]
     Dosage: 20MG -40MG
     Dates: start: 20020806
  7. IMITREX [Concomitant]
     Dates: start: 20030626
  8. LITHOBID [Concomitant]
     Dates: start: 20020410
  9. PROMETHAZINE [Concomitant]
     Dates: start: 20020518
  10. PROPRANOLOL [Concomitant]
     Dates: start: 20030609
  11. TIZANIDINE HYDROCHLORIDE [Concomitant]
     Dates: start: 20030605
  12. TRILEPTAL [Concomitant]
     Dosage: 300MG -600MG
     Dates: start: 20020418
  13. WELLBUTRIN SR [Concomitant]
     Dosage: 100MG -150MG
     Dates: start: 20020612
  14. ZYPREXA [Concomitant]
     Dosage: 5MG -10MG
     Dates: start: 20020410

REACTIONS (1)
  - ILL-DEFINED DISORDER [None]
